FAERS Safety Report 9147311 (Version 1)
Quarter: 2013Q1

REPORT INFORMATION
  Report Type: Spontaneous
  Country: US (occurrence: US)
  Receive Date: 20130307
  Receipt Date: 20130307
  Transmission Date: 20140127
  Serious: No
  Sender: FDA-Public Use
  Company Number: US-PFIZER INC-2013013541

PATIENT
  Age: 64 Year
  Sex: Male
  Weight: 99.77 kg

DRUGS (4)
  1. VIAGRA [Suspect]
     Indication: POSTOPERATIVE CARE
     Dosage: 50 MG, 3X/WEEK
     Route: 048
     Dates: start: 201301
  2. VIAGRA [Suspect]
     Indication: CARDIOVASCULAR DISORDER
  3. VIAGRA [Suspect]
     Indication: PROPHYLAXIS
  4. VIAGRA [Suspect]
     Indication: PROSTATE CANCER

REACTIONS (4)
  - Off label use [Unknown]
  - Abdominal pain upper [Not Recovered/Not Resolved]
  - Dyspepsia [Not Recovered/Not Resolved]
  - Flushing [Unknown]
